FAERS Safety Report 5742828-1 (Version None)
Quarter: 2008Q2

REPORT INFORMATION
  Report Type: 
  Country: None (occurrence: None)
  Receive Date: 20080519
  Receipt Date: 20080508
  Transmission Date: 20081010
  Serious: Yes (Other)
  Sender: FDA-Public Use
  Company Number: US-JNJFOC-20080502415

PATIENT
  Age: 40 Year
  Sex: Male

DRUGS (4)
  1. PREZISTA [Suspect]
     Indication: HIV INFECTION
     Route: 048
  2. COMBIVIR [Concomitant]
     Indication: HIV INFECTION
     Route: 065
  3. TENOFOVIR [Concomitant]
     Indication: HIV INFECTION
     Route: 065
  4. RITONAVIR [Concomitant]
     Indication: HIV INFECTION
     Route: 065

REACTIONS (6)
  - DIARRHOEA [None]
  - IMMUNE RECONSTITUTION SYNDROME [None]
  - INSOMNIA [None]
  - PALPITATIONS [None]
  - TREMOR [None]
  - WEIGHT DECREASED [None]
